FAERS Safety Report 7915438-5 (Version None)
Quarter: 2011Q4

REPORT INFORMATION
  Report Type: 
  Country: None (occurrence: None)
  Receive Date: 20111115
  Receipt Date: 20111018
  Transmission Date: 20120403
  Serious: Yes (Hospitalization, Other)
  Sender: FDA-Public Use
  Company Number: GXKR2011DE003303

PATIENT
  Sex: Male
  Weight: 79 kg

DRUGS (5)
  1. TILIDINE [Suspect]
     Indication: PAIN
     Dosage: 30 GTT, BID
     Route: 048
  2. DOCETAXEL [Suspect]
     Indication: PROSTATE CANCER METASTATIC
     Dosage: 140 MG, UNK
     Route: 042
     Dates: start: 20111007, end: 20111007
  3. PAMIDRONATE DISODIUM [Suspect]
     Indication: METASTASES TO BONE
     Dosage: 90 MG, UNK
     Route: 042
     Dates: start: 20111005, end: 20111005
  4. BISOPROLOL [Suspect]
     Indication: HYPERTENSION
     Dosage: 10 MG, UNK
     Route: 048
  5. PREDNISOLONE [Suspect]
     Indication: PROSTATE CANCER METASTATIC
     Dosage: 2.5 MG, BID
     Route: 048

REACTIONS (2)
  - ASTHENIA [None]
  - SYNCOPE [None]
